FAERS Safety Report 5036171-6 (Version None)
Quarter: 2006Q2

REPORT INFORMATION
  Report Type: 
  Country: None (occurrence: None)
  Receive Date: 20060627
  Receipt Date: 20060623
  Transmission Date: 20061013
  Serious: Yes (Hospitalization)
  Sender: FDA-Public Use
  Company Number: US-MERCK-0606USA04541

PATIENT
  Age: 75 Year
  Sex: Male

DRUGS (3)
  1. PROSCAR [Suspect]
     Indication: PROSTATE EXAMINATION ABNORMAL
     Route: 048
     Dates: end: 20060301
  2. PROSCAR [Suspect]
     Route: 048
     Dates: start: 20060602
  3. [THERAPY UNSPECIFIED] [Concomitant]
     Route: 065

REACTIONS (3)
  - OEDEMA PERIPHERAL [None]
  - PROSTATIC DISORDER [None]
  - URINARY INCONTINENCE [None]
